FAERS Safety Report 13088970 (Version 1)
Quarter: 2017Q1

REPORT INFORMATION
  Report Type: Spontaneous
  Country: US (occurrence: US)
  Receive Date: 20170105
  Receipt Date: 20170105
  Transmission Date: 20170428
  Serious: No
  Sender: FDA-Public Use
  Company Number: US-PERRIGO-16US000414

PATIENT
  Age: 75 Year
  Sex: Female
  Weight: 49.89 kg

DRUGS (2)
  1. GUAIFENESIN. [Suspect]
     Active Substance: GUAIFENESIN
     Indication: RESPIRATORY TRACT CONGESTION
     Dosage: 600 MG, EVERY 12 HOURS
     Route: 048
     Dates: start: 20160111, end: 20160114
  2. GUAIFENESIN. [Suspect]
     Active Substance: GUAIFENESIN
     Indication: RHINORRHOEA

REACTIONS (3)
  - Drug ineffective [Unknown]
  - Off label use [Recovered/Resolved]
  - Fatigue [Unknown]

NARRATIVE: CASE EVENT DATE: 20160111
